FAERS Safety Report 11499722 (Version 1)
Quarter: 2015Q3

REPORT INFORMATION
  Report Type: Spontaneous
  Country: US (occurrence: None)
  Receive Date: 20150910
  Receipt Date: 20150910
  Transmission Date: 20151125
  Serious: Yes (Disabling)
  Sender: FDA-Public Use
  Company Number: None

PATIENT
  Age: 36 Year
  Sex: Female
  Weight: 57.15 kg

DRUGS (4)
  1. DIFFERIN [Concomitant]
     Active Substance: ADAPALENE
  2. ACANYA [Concomitant]
     Active Substance: BENZOYL PEROXIDE\CLINDAMYCIN PHOSPHATE
  3. MINIVELLE [Concomitant]
     Active Substance: ESTRADIOL
  4. LEVOFLOXACIN 500 MG TABLETS [Suspect]
     Active Substance: LEVOFLOXACIN
     Indication: PNEUMONIA
     Dates: start: 20150706, end: 20150720

REACTIONS (5)
  - Peripheral swelling [None]
  - Tendon injury [None]
  - Pain in extremity [None]
  - Contusion [None]
  - Pain [None]

NARRATIVE: CASE EVENT DATE: 20150808
